FAERS Safety Report 17563611 (Version 1)
Quarter: 2020Q1

REPORT INFORMATION
  Report Type: Report from Study
  Country: CA (occurrence: CA)
  Receive Date: 20200320
  Receipt Date: 20200320
  Transmission Date: 20200409
  Serious: Yes (Death, Hospitalization, Other)
  Sender: FDA-Public Use
  Company Number: CA-TEVA-2020-CA-1206758

PATIENT
  Age: 78 Year
  Sex: Female
  Weight: 78 kg

DRUGS (28)
  1. GRAVOL [Concomitant]
     Active Substance: DIMENHYDRINATE
     Route: 065
  2. FENTANYL. [Concomitant]
     Active Substance: FENTANYL
     Route: 065
  3. MELATONIN [Concomitant]
     Active Substance: MELATONIN
     Route: 065
  4. SYMBICORT [Concomitant]
     Active Substance: BUDESONIDE\FORMOTEROL FUMARATE DIHYDRATE
  5. RISEDRONATE SODIUM. [Concomitant]
     Active Substance: RISEDRONATE SODIUM
     Route: 065
  6. TYLENOL 8 HR ARTHRITIS PAIN [Concomitant]
     Active Substance: ACETAMINOPHEN
  7. METHOTREXATE. [Suspect]
     Active Substance: METHOTREXATE
     Indication: PRODUCT USED FOR UNKNOWN INDICATION
     Route: 065
  8. ACETAMINOPHEN. [Concomitant]
     Active Substance: ACETAMINOPHEN
     Route: 048
  9. CYMBALTA [Concomitant]
     Active Substance: DULOXETINE HYDROCHLORIDE
  10. METHYLPREDNISOLONE. [Concomitant]
     Active Substance: METHYLPREDNISOLONE
     Route: 042
  11. CICLESONIDE [Concomitant]
     Active Substance: CICLESONIDE
  12. DABIGATRAN ETEXILATE MESILATE [Concomitant]
     Active Substance: DABIGATRAN ETEXILATE MESYLATE
  13. DIPHENHYDRAMINE HYDROCHLORIDE. [Concomitant]
     Active Substance: DIPHENHYDRAMINE HYDROCHLORIDE
     Route: 048
  14. TYLENOL [Concomitant]
     Active Substance: ACETAMINOPHEN
  15. RITUXIMAB. [Suspect]
     Active Substance: RITUXIMAB
     Indication: RHEUMATOID ARTHRITIS
     Route: 042
  16. DIPHENHYDRAMINE HYDROCHLORIDE. [Concomitant]
     Active Substance: DIPHENHYDRAMINE HYDROCHLORIDE
     Route: 048
  17. FOLIC ACID. [Concomitant]
     Active Substance: FOLIC ACID
  18. METFORMIN [Concomitant]
     Active Substance: METFORMIN HYDROCHLORIDE
  19. METHYLPREDNISOLONE. [Concomitant]
     Active Substance: METHYLPREDNISOLONE
     Route: 042
  20. METOPROLOL. [Concomitant]
     Active Substance: METOPROLOL
  21. PANTOPRAZOLE [Concomitant]
     Active Substance: PANTOPRAZOLE
  22. PREVACID [Concomitant]
     Active Substance: LANSOPRAZOLE
  23. VITAMIN C [Concomitant]
     Active Substance: ASCORBIC ACID
  24. LOSARTAN. [Concomitant]
     Active Substance: LOSARTAN
     Route: 065
  25. ACETAMINOPHEN. [Concomitant]
     Active Substance: ACETAMINOPHEN
     Route: 048
  26. AVAPRO [Concomitant]
     Active Substance: IRBESARTAN
     Indication: BLOOD PRESSURE MEASUREMENT
  27. HYDROCORTISONE. [Concomitant]
     Active Substance: HYDROCORTISONE
  28. PREDNISONE. [Concomitant]
     Active Substance: PREDNISONE

REACTIONS (18)
  - Gastrooesophageal reflux disease [Fatal]
  - Humerus fracture [Fatal]
  - Osteoporosis [Fatal]
  - Oxygen saturation decreased [Fatal]
  - Gastritis [Fatal]
  - Abdominal pain [Fatal]
  - Productive cough [Fatal]
  - Blood pressure fluctuation [Fatal]
  - Bradycardia [Fatal]
  - Death [Fatal]
  - Dyspnoea [Fatal]
  - Blood pressure systolic increased [Fatal]
  - Atrial fibrillation [Fatal]
  - Pneumonia [Fatal]
  - Infusion related reaction [Fatal]
  - Thrombosis [Fatal]
  - Abdominal discomfort [Fatal]
  - Fall [Fatal]
